FAERS Safety Report 4442936-1 (Version None)
Quarter: 2004Q3

REPORT INFORMATION
  Report Type: 
  Country: None (occurrence: None)
  Receive Date: 20040907
  Receipt Date: 20040907
  Transmission Date: 20050211
  Serious: Yes (Other)
  Sender: FDA-Public Use
  Company Number: None

PATIENT
  Age: 47 Year
  Sex: Male
  Weight: 67.586 kg

DRUGS (3)
  1. HALDOL [Suspect]
     Indication: DELUSIONAL DISORDER, UNSPECIFIED TYPE
     Dosage: 5 MG IM X 2 IN 24 HRS
     Route: 030
     Dates: start: 20040715
  2. HALDOL [Suspect]
     Indication: PSYCHOTIC DISORDER
     Dosage: 5 MG IM X 2 IN 24 HRS
     Route: 030
     Dates: start: 20040715
  3. ATIVAN [Concomitant]

REACTIONS (2)
  - DYSPHAGIA [None]
  - SWOLLEN TONGUE [None]
